FAERS Safety Report 4493155-4 (Version None)
Quarter: 2004Q4

REPORT INFORMATION
  Report Type: 
  Country: None (occurrence: None)
  Receive Date: 20041104
  Receipt Date: 20041022
  Transmission Date: 20050328
  Serious: Yes (Hospitalization)
  Sender: FDA-Public Use
  Company Number: IT-ROCHE-383962

PATIENT
  Age: 69 Year
  Sex: Female
  Weight: 67 kg

DRUGS (4)
  1. CAPECITABINE [Suspect]
     Indication: BREAST CANCER
     Dosage: DAYS 1 TO 14 EVERY 21 DAYS.
     Route: 048
     Dates: start: 20040910
  2. DOCETAXEL [Suspect]
     Indication: BREAST CANCER
     Route: 042
     Dates: start: 20040910
  3. EPIRUBICIN [Suspect]
     Indication: BREAST CANCER
     Route: 042
     Dates: start: 20040910
  4. ENALAPRIL [Concomitant]
     Route: 048
     Dates: start: 19990615

REACTIONS (2)
  - DEEP VEIN THROMBOSIS [None]
  - LOCALISED INFECTION [None]
